FAERS Safety Report 12189106 (Version 1)
Quarter: 2016Q1

REPORT INFORMATION
  Report Type: Spontaneous
  Country: US (occurrence: US)
  Receive Date: 20160317
  Receipt Date: 20160317
  Transmission Date: 20160526
  Serious: No
  Sender: FDA-Public Use
  Company Number: US-ELI_LILLY_AND_COMPANY-US201602009949

PATIENT
  Sex: Female

DRUGS (2)
  1. HUMALOG [Suspect]
     Active Substance: INSULIN LISPRO
     Dosage: 2.5 U, UNKNOWN
     Route: 065
     Dates: start: 20160118
  2. HUMALOG [Suspect]
     Active Substance: INSULIN LISPRO
     Indication: PANCREAS TRANSPLANT
     Dosage: 0.5 U, EACH MORNING
     Route: 065
     Dates: start: 20160118

REACTIONS (3)
  - Incorrect drug administration duration [Unknown]
  - Decreased appetite [Unknown]
  - Blood glucose decreased [Unknown]

NARRATIVE: CASE EVENT DATE: 20160225
